FAERS Safety Report 4303977-8 (Version None)
Quarter: 2004Q1

REPORT INFORMATION
  Report Type: 
  Country: None (occurrence: None)
  Receive Date: 20040223
  Receipt Date: 20031118
  Transmission Date: 20041129
  Serious: No
  Sender: FDA-Public Use
  Company Number: PHEH2003US10652

PATIENT
  Age: 45 Year
  Sex: Female

DRUGS (6)
  1. ZELNORM [Suspect]
     Indication: IRRITABLE BOWEL SYNDROME
     Dosage: 2 MG, BID, ORAL; 4 MG, BID, ORAL; 6 MG, BID
     Route: 048
     Dates: end: 20031113
  2. ZELNORM [Suspect]
     Indication: IRRITABLE BOWEL SYNDROME
     Dosage: 2 MG, BID, ORAL; 4 MG, BID, ORAL; 6 MG, BID
     Route: 048
     Dates: start: 20030901
  3. ZELNORM [Suspect]
     Indication: IRRITABLE BOWEL SYNDROME
     Dosage: 2 MG, BID, ORAL; 4 MG, BID, ORAL; 6 MG, BID
     Route: 048
     Dates: start: 20031114
  4. NEXIUM [Concomitant]
  5. BENTYL [Concomitant]
  6. ASPIRIN [Concomitant]

REACTIONS (2)
  - FATIGUE [None]
  - MUSCULAR WEAKNESS [None]
